FAERS Safety Report 13651371 (Version 1)
Quarter: 2017Q2

REPORT INFORMATION
  Report Type: Spontaneous
  Country: US (occurrence: US)
  Receive Date: 20170614
  Receipt Date: 20170614
  Transmission Date: 20170830
  Serious: No
  Sender: FDA-Public Use
  Company Number: US-009507513-1706USA004258

PATIENT
  Age: 57 Year
  Sex: Male

DRUGS (2)
  1. CYMBALTA [Concomitant]
     Active Substance: DULOXETINE HYDROCHLORIDE
     Indication: DEPRESSION
  2. BELSOMRA [Suspect]
     Active Substance: SUVOREXANT
     Indication: SLEEP DISORDER
     Dosage: 10 MG, HS
     Route: 048
     Dates: start: 20170606

REACTIONS (2)
  - Poor quality sleep [Unknown]
  - Middle insomnia [Unknown]

NARRATIVE: CASE EVENT DATE: 20170606
